FAERS Safety Report 13344845 (Version 1)
Quarter: 2017Q1

REPORT INFORMATION
  Report Type: Spontaneous
  Country: DE (occurrence: DE)
  Receive Date: 20170317
  Receipt Date: 20170317
  Transmission Date: 20170428
  Serious: Yes (Hospitalization, Other)
  Sender: FDA-Public Use
  Company Number: DE-AMGEN-DEUSP2017039705

PATIENT
  Sex: Male

DRUGS (13)
  1. RITUXIMAB [Suspect]
     Active Substance: RITUXIMAB
     Indication: B-CELL LYMPHOMA
     Dosage: 758.9 MG, Q2WK
     Route: 042
     Dates: start: 20151001
  2. ACICLOVIR [Concomitant]
     Active Substance: ACYCLOVIR
     Indication: INFECTION PROPHYLAXIS
     Dosage: 400 MG, TID (3 IN 1 D)
     Route: 048
     Dates: start: 201510
  3. FILGRASTIM [Suspect]
     Active Substance: FILGRASTIM
     Indication: B-CELL LYMPHOMA
     Dosage: UNK UNK, Q2WK (48 MIO IE/0.5 ML)
     Route: 058
     Dates: start: 20151014
  4. VINCRISTINE [Suspect]
     Active Substance: VINCRISTINE
     Dosage: 1 MG, Q2WK
     Route: 042
     Dates: start: 20151120
  5. PANTOPRAZOLE [Concomitant]
     Active Substance: PANTOPRAZOLE SODIUM
     Indication: PROPHYLAXIS AGAINST GASTROINTESTINAL ULCER
     Dosage: 40 MG, QD (1 IN 1 D)
     Route: 048
     Dates: start: 201510
  6. SULFAMETHOXAZOLE W/TRIMETHOPRIM [Concomitant]
     Active Substance: SULFAMETHOXAZOLE\TRIMETHOPRIM
     Indication: INFECTION PROPHYLAXIS
     Dosage: 960 MG, UNK (AT THE WEEKEND 1-0-1)
     Route: 048
  7. DOXORUBICINE [Suspect]
     Active Substance: DOXORUBICIN
     Indication: B-CELL LYMPHOMA
     Dosage: 102 MG, Q2WK
     Route: 042
     Dates: start: 20151009, end: 20151218
  8. VINCRISTINE [Suspect]
     Active Substance: VINCRISTINE
     Indication: B-CELL LYMPHOMA
     Dosage: 2 MG, Q2WK
     Route: 042
     Dates: start: 20151009, end: 20151204
  9. AMPHOTERICIN B. [Concomitant]
     Active Substance: AMPHOTERICIN B
     Indication: MUCOSITIS MANAGEMENT
     Dosage: 100 MG, QID (4 IN 1 D)
     Route: 048
  10. CYCLOPHOSPHAMIDE. [Suspect]
     Active Substance: CYCLOPHOSPHAMIDE
     Indication: B-CELL LYMPHOMA
     Dosage: 1530 MG, Q2WK
     Route: 042
     Dates: start: 20151009, end: 20151218
  11. RITUXIMAB [Suspect]
     Active Substance: RITUXIMAB
     Dosage: 765 MG, Q2WK
     Route: 042
  12. PREDNISOLONE. [Suspect]
     Active Substance: PREDNISOLONE
     Indication: B-CELL LYMPHOMA
     Dosage: 100 MG, Q2WK
     Route: 048
     Dates: start: 20151009, end: 20151218
  13. METHOTREXATE DISODIUM [Suspect]
     Active Substance: METHOTREXATE SODIUM
     Indication: B-CELL LYMPHOMA
     Dosage: 1.5 G/M2, QD (1 IN 1 D)
     Route: 042
     Dates: start: 20151002, end: 20151002

REACTIONS (2)
  - Pneumonia [Recovered/Resolved]
  - Device related infection [Recovered/Resolved with Sequelae]

NARRATIVE: CASE EVENT DATE: 20151227
